FAERS Safety Report 11121126 (Version 2)
Quarter: 2015Q3

REPORT INFORMATION
  Report Type: Spontaneous
  Country: US (occurrence: US)
  Receive Date: 20150519
  Receipt Date: 20150918
  Transmission Date: 20151125
  Serious: Yes (Hospitalization)
  Sender: FDA-Public Use
  Company Number: US-BAYER-2015-245244

PATIENT
  Age: 24 Year
  Sex: Female
  Weight: 53.52 kg

DRUGS (1)
  1. MIRENA [Suspect]
     Active Substance: LEVONORGESTREL
     Indication: CONTRACEPTION
     Dosage: 20 MCG/24HR, CONT
     Route: 015
     Dates: start: 20120216, end: 20130507

REACTIONS (8)
  - Injury [None]
  - Procedural pain [None]
  - Device issue [None]
  - Abdominal pain lower [None]
  - Abdominal pain [None]
  - Device dislocation [None]
  - Fear [None]
  - Disorientation [None]

NARRATIVE: CASE EVENT DATE: 201202
